FAERS Safety Report 14186529 (Version 3)
Quarter: 2018Q2

REPORT INFORMATION
  Report Type: Spontaneous
  Country: US (occurrence: US)
  Receive Date: 20171114
  Receipt Date: 20180508
  Transmission Date: 20180711
  Serious: No
  Sender: FDA-Public Use
  Company Number: US-CELLTRION INC.-2017US012462

PATIENT

DRUGS (5)
  1. INFLECTRA [Suspect]
     Active Substance: INFLIXIMAB-DYYB
     Dosage: 4 VIALS OF 100 MG EACH AT 0, 2, 6 AND THEN EVERY 6-8 WEEKS
     Route: 065
     Dates: start: 20180105, end: 20180105
  2. INFLECTRA [Suspect]
     Active Substance: INFLIXIMAB-DYYB
     Indication: PSORIATIC ARTHROPATHY
     Dosage: UNK, (4 VIALS OF 100MG EACH AT 0, 2, 6 AND THEN EVERY 6-8 WEEKS)
     Route: 065
  3. INFLECTRA [Suspect]
     Active Substance: INFLIXIMAB-DYYB
     Dosage: 4 VIALS OF 100 MG EACH AT 0, 2, 6 AND THEN EVERY 6-8 WEEKS
     Route: 065
     Dates: start: 20171109, end: 20171109
  4. INFLECTRA [Suspect]
     Active Substance: INFLIXIMAB-DYYB
     Dosage: 4 VIALS OF 100 MG EACH AT 0, 2, 6 AND THEN EVERY 6-8 WEEKS
     Route: 065
     Dates: start: 20171211, end: 20171211
  5. INFLECTRA [Suspect]
     Active Substance: INFLIXIMAB-DYYB
     Dosage: 4 VIALS OF 100 MG EACH AT 0, 2, 6 AND THEN EVERY 6-8 WEEKS
     Route: 065
     Dates: start: 20180409, end: 20180409

REACTIONS (2)
  - Drug prescribing error [Unknown]
  - Inappropriate schedule of drug administration [Unknown]
